FAERS Safety Report 19908165 (Version 1)
Quarter: 2021Q4

REPORT INFORMATION
  Report Type: Spontaneous
  Country: GB (occurrence: GB)
  Receive Date: 20211001
  Receipt Date: 20211001
  Transmission Date: 20220304
  Serious: Yes (Other)
  Sender: FDA-Public Use
  Company Number: None

PATIENT
  Age: 74 Year
  Sex: Male
  Weight: 92 kg

DRUGS (9)
  1. ATORVASTATIN CALCIUM [Suspect]
     Active Substance: ATORVASTATIN CALCIUM
     Indication: Product used for unknown indication
     Dates: start: 20210621
  2. ASPIRIN [Concomitant]
     Active Substance: ASPIRIN
     Dosage: INDEFINITELY
     Dates: start: 20210621
  3. BISOPROLOL [Concomitant]
     Active Substance: BISOPROLOL
     Dates: start: 20210621
  4. EPLERENONE [Concomitant]
     Active Substance: EPLERENONE
     Dates: start: 20210621
  5. LANSOPRAZOLE [Concomitant]
     Active Substance: LANSOPRAZOLE
     Dates: start: 20210621
  6. LISINOPRIL [Concomitant]
     Active Substance: LISINOPRIL
     Dates: start: 20210621
  7. MIRTAZAPINE [Concomitant]
     Active Substance: MIRTAZAPINE
     Dosage: AT BEDTIME
     Dates: start: 20210921
  8. ACETAMINOPHEN [Concomitant]
     Active Substance: ACETAMINOPHEN
     Indication: Pain
     Dosage: TAKE 1 OR 2 TABLETS UP TO 4 TIMES/DAY
     Dates: start: 20210621
  9. TICAGRELOR [Concomitant]
     Active Substance: TICAGRELOR
     Dosage: FOR 3 YEARS UNTIL 4/2024
     Dates: start: 20210621

REACTIONS (3)
  - Pain [Unknown]
  - Anger [Unknown]
  - Anxiety [Unknown]

NARRATIVE: CASE EVENT DATE: 20210921
